FAERS Safety Report 11317700 (Version 1)
Quarter: 2015Q3

REPORT INFORMATION
  Report Type: Spontaneous
  Country: US (occurrence: US)
  Receive Date: 20150728
  Receipt Date: 20150728
  Transmission Date: 20151125
  Serious: No
  Sender: FDA-Public Use
  Company Number: US-MEDA-2015070014

PATIENT
  Sex: Female

DRUGS (1)
  1. CROMOLYN SODIUM. [Suspect]
     Active Substance: CROMOLYN SODIUM
     Indication: GASTRIC DISORDER
     Route: 048
     Dates: start: 20150702, end: 20150703

REACTIONS (1)
  - Burning sensation [Recovered/Resolved]

NARRATIVE: CASE EVENT DATE: 20150702
